FAERS Safety Report 18289334 (Version 1)
Quarter: 2020Q3

REPORT INFORMATION
  Report Type: Report from Study
  Country: US (occurrence: US)
  Receive Date: 20200921
  Receipt Date: 20200921
  Transmission Date: 20201103
  Serious: Yes (Death)
  Sender: FDA-Public Use
  Company Number: US-ASTRAZENECA-2020SF19732

PATIENT
  Sex: Male

DRUGS (9)
  1. ACYCLOVIR. [Concomitant]
     Active Substance: ACYCLOVIR
  2. PANTOPRAZOLE [Concomitant]
     Active Substance: PANTOPRAZOLE
  3. CEFEPIME [Concomitant]
     Active Substance: CEFEPIME HYDROCHLORIDE
  4. CALQUENCE [Suspect]
     Active Substance: ACALABRUTINIB
     Indication: MANTLE CELL LYMPHOMA
     Route: 048
  5. BENADRYL [Concomitant]
     Active Substance: DIPHENHYDRAMINE HYDROCHLORIDE
  6. ALLOPURINOL. [Concomitant]
     Active Substance: ALLOPURINOL
  7. ALBUTEROL. [Concomitant]
     Active Substance: ALBUTEROL
  8. DEXAMETHASONE. [Concomitant]
     Active Substance: DEXAMETHASONE
  9. METOPROLOL. [Suspect]
     Active Substance: METOPROLOL
     Route: 065

REACTIONS (1)
  - Death [Fatal]
